FAERS Safety Report 4677522-1 (Version None)
Quarter: 2005Q2

REPORT INFORMATION
  Report Type: 
  Country: None (occurrence: None)
  Receive Date: 20050525
  Receipt Date: 20050525
  Transmission Date: 20051028
  Serious: Yes (Other)
  Sender: FDA-Public Use
  Company Number: None

PATIENT
  Age: 79 Year
  Sex: Male
  Weight: 64.9 kg

DRUGS (11)
  1. HYDROCODONE/ACETAMINOPHEN 5/50 [Suspect]
  2. ACETAMINOPHEN [Concomitant]
  3. ASPIRIN [Concomitant]
  4. ATENOLOL [Concomitant]
  5. CEPHALEXIN [Concomitant]
  6. CITALOPRAM [Concomitant]
  7. CLONIDINE [Concomitant]
  8. FELODIPINE [Concomitant]
  9. FOLIC ACID [Concomitant]
  10. NIFEREX [Concomitant]
  11. OMEPRAZOLE [Concomitant]

REACTIONS (1)
  - CONFUSIONAL STATE [None]
